FAERS Safety Report 16489673 (Version 8)
Quarter: 2020Q1

REPORT INFORMATION
  Report Type: Spontaneous
  Country: US (occurrence: US)
  Receive Date: 20190628
  Receipt Date: 20200310
  Transmission Date: 20200409
  Serious: No
  Sender: FDA-Public Use
  Company Number: US-PFIZER INC-2019277685

PATIENT
  Age: 77 Year
  Sex: Female

DRUGS (2)
  1. XALKORI [Suspect]
     Active Substance: CRIZOTINIB
     Indication: SMALL INTESTINE CARCINOMA
     Dosage: 250 MG, UNK
  2. XALKORI [Suspect]
     Active Substance: CRIZOTINIB
     Indication: VITELLO-INTESTINAL DUCT REMNANT

REACTIONS (7)
  - Product use in unapproved indication [Unknown]
  - Dizziness [Unknown]
  - Cough [Unknown]
  - Off label use [Unknown]
  - Feeling abnormal [Unknown]
  - Nasopharyngitis [Unknown]
  - Depression [Unknown]
